FAERS Safety Report 19494537 (Version 1)
Quarter: 2021Q3

REPORT INFORMATION
  Report Type: Spontaneous
  Country: DE (occurrence: DE)
  Receive Date: 20210706
  Receipt Date: 20210706
  Transmission Date: 20211014
  Serious: Yes (Other)
  Sender: FDA-Public Use
  Company Number: DE-JNJFOC-20210704313

PATIENT
  Sex: Male

DRUGS (3)
  1. CORTISONE [Suspect]
     Active Substance: CORTISONE
     Indication: PRODUCT USED FOR UNKNOWN INDICATION
     Route: 065
  2. ZYTIGA [Suspect]
     Active Substance: ABIRATERONE ACETATE
     Indication: PROSTATE CANCER METASTATIC
     Route: 048
  3. CORTISONE [Suspect]
     Active Substance: CORTISONE
     Dosage: DOSE WAS REDUCED TO 5 MG
     Route: 065

REACTIONS (1)
  - Diabetes mellitus [Unknown]
